FAERS Safety Report 8124226-9 (Version None)
Quarter: 2012Q1

REPORT INFORMATION
  Report Type: 
  Country: None (occurrence: None)
  Receive Date: 20120209
  Receipt Date: 20120131
  Transmission Date: 20120608
  Serious: Yes (Hospitalization, Other)
  Sender: FDA-Public Use
  Company Number: US-BAYER-2011-032443

PATIENT
  Age: 33 Year
  Sex: Female
  Weight: 91 kg

DRUGS (5)
  1. YASMIN [Suspect]
     Indication: PRODUCT USED FOR UNKNOWN INDICATION
     Dosage: UNK
     Route: 048
     Dates: start: 20040701, end: 20080501
  2. IBUPROFEN [Concomitant]
     Dosage: UNK
     Dates: start: 20090325
  3. ALBUTEROL [Concomitant]
     Indication: ASTHMA
     Dosage: 2 PUFFS INHALATION
     Dates: start: 20020906
  4. DROSPIRENONE AND ETHINYL ESTRADIOL [Suspect]
     Indication: CONTRACEPTION
     Dosage: UNK
     Route: 048
     Dates: start: 20090506, end: 20090520
  5. CEPHALEXIN [Concomitant]
     Dosage: UNK
     Dates: start: 20090325

REACTIONS (5)
  - EMOTIONAL DISTRESS [None]
  - PAIN [None]
  - PAIN IN EXTREMITY [None]
  - DEEP VEIN THROMBOSIS [None]
  - ANXIETY [None]
